FAERS Safety Report 4305312-8 (Version None)
Quarter: 2004Q1

REPORT INFORMATION
  Report Type: 
  Country: None (occurrence: None)
  Receive Date: 20040226
  Receipt Date: 20030415
  Transmission Date: 20041129
  Serious: No
  Sender: FDA-Public Use
  Company Number: US-BRISTOL-MYERS SQUIBB COMPANY-12245262

PATIENT
  Age: 46 Year
  Sex: Female

DRUGS (3)
  1. TAXOL [Suspect]
     Indication: CARCINOMA
     Dosage: LOT # LL57297 EXP. 10/31/2005 WAS ALSO USED IN THIS INFUSION
     Route: 042
     Dates: start: 20030414, end: 20030414
  2. BENADRYL [Concomitant]
     Indication: PREMEDICATION
  3. ANZEMET [Concomitant]
     Indication: PREMEDICATION

REACTIONS (1)
  - HYPERSENSITIVITY [None]
